FAERS Safety Report 9433271 (Version 1)
Quarter: 2013Q3

REPORT INFORMATION
  Report Type: Spontaneous
  Country: DE (occurrence: DE)
  Receive Date: 20130731
  Receipt Date: 20130731
  Transmission Date: 20140515
  Serious: Yes (Other)
  Sender: FDA-Public Use
  Company Number: DE-GLAXOSMITHKLINE-B0911825A

PATIENT
  Age: 31 Week
  Sex: Male

DRUGS (1)
  1. RYTHMOL [Suspect]
     Indication: PRODUCT USED FOR UNKNOWN INDICATION
     Dosage: 600MG SINGLE DOSE
     Route: 063

REACTIONS (3)
  - Exposure during breast feeding [Unknown]
  - Restlessness [Unknown]
  - Tachycardia [Unknown]
